FAERS Safety Report 22166417 (Version 1)
Quarter: 2023Q2

REPORT INFORMATION
  Report Type: Spontaneous
  Country: FR (occurrence: FR)
  Receive Date: 20230403
  Receipt Date: 20230403
  Transmission Date: 20230722
  Serious: Yes (Hospitalization)
  Sender: FDA-Public Use
  Company Number: FR-PHARMAAND-2023PHR00029

PATIENT
  Age: 72 Year
  Sex: Male

DRUGS (1)
  1. PEGASYS [Suspect]
     Active Substance: PEGINTERFERON ALFA-2A
     Indication: Essential thrombocythaemia
     Dosage: 135 ?G, 1X/WEEK
     Route: 058
     Dates: start: 202103, end: 202207

REACTIONS (3)
  - Axonal and demyelinating polyneuropathy [Recovering/Resolving]
  - Hypoaesthesia [Recovering/Resolving]
  - Off label use [Recovered/Resolved]

NARRATIVE: CASE EVENT DATE: 20220401
